FAERS Safety Report 6220827-3 (Version None)
Quarter: 2009Q2

REPORT INFORMATION
  Report Type: 
  Country: None (occurrence: None)
  Receive Date: 20090605
  Receipt Date: 20090601
  Transmission Date: 20091009
  Serious: Yes (Life-Threatening, Hospitalization, Disabling)
  Sender: FDA-Public Use
  Company Number: GBWYE907925JUN07

PATIENT
  Age: 38 Year
  Sex: Female

DRUGS (17)
  1. ANADIN IBUPROFEN (IBUPROFEN, UNSPEC) [Suspect]
  2. CHAMPIX (VARENICLINE, 0) [Suspect]
     Indication: SMOKING CESSATION THERAPY
     Dosage: 0.5 MG 1X PER 1 DAY ORAL
     Route: 048
     Dates: start: 20070420, end: 20070501
  3. ASPIRIN [Concomitant]
  4. ACTRAPID HUMAN (INSULIN HUMAN) [Concomitant]
  5. IRBESARTAN [Concomitant]
  6. BUMETANIDE [Concomitant]
  7. DOSULEPIN (DOSULEPIN) [Concomitant]
  8. FLUTICASONE PROPIONATE [Concomitant]
  9. FUROSEMIDE [Concomitant]
  10. GABAPENTIN [Concomitant]
  11. KETOCONAZOLE [Concomitant]
  12. LEVOTHYROXINE SODIUM [Concomitant]
  13. RAMIPRIL [Concomitant]
  14. SALMETEROL (SALMETEROL) [Concomitant]
  15. TRAMADOL HCL [Concomitant]
  16. ATORVASTATIN CALCIUM [Concomitant]
  17. SERETIDE (SALMETEROL/FLUTICASONE) [Concomitant]

REACTIONS (8)
  - ALANINE AMINOTRANSFERASE INCREASED [None]
  - BLOOD ALKALINE PHOSPHATASE INCREASED [None]
  - CONDITION AGGRAVATED [None]
  - FATIGUE [None]
  - GAMMA-GLUTAMYLTRANSFERASE INCREASED [None]
  - INSOMNIA [None]
  - LIVER FUNCTION TEST ABNORMAL [None]
  - OEDEMA [None]
